FAERS Safety Report 18501736 (Version 1)
Quarter: 2020Q4

REPORT INFORMATION
  Report Type: Spontaneous
  Country: FR (occurrence: FR)
  Receive Date: 20201113
  Receipt Date: 20201113
  Transmission Date: 20210114
  Serious: Yes (Hospitalization)
  Sender: FDA-Public Use
  Company Number: FR-TEVA-2020-FR-1847972

PATIENT
  Age: 14 Year
  Sex: Female

DRUGS (6)
  1. VERATRAN [Suspect]
     Active Substance: CLOTIAZEPAM
     Dosage: 50MILLIGRAM
     Route: 048
  2. LYSANXIA [Suspect]
     Active Substance: PRAZEPAM
     Route: 048
  3. TRAMADOL (CHLORHYDRATE DE) [Suspect]
     Active Substance: TRAMADOL HYDROCHLORIDE
     Dosage: 1500MILLIGRAM
     Route: 048
  4. FLANID [Suspect]
     Active Substance: TIAPROFENIC ACID
     Dosage: 3000MILLIGRAM
     Route: 048
  5. PARACETAMOL [Suspect]
     Active Substance: ACETAMINOPHEN
     Dosage: 500MILLIGRAM
     Route: 048
  6. DICETEL [Suspect]
     Active Substance: PINAVERIUM BROMIDE
     Route: 048

REACTIONS (5)
  - Apnoea [Recovered/Resolved]
  - Disorientation [Recovered/Resolved]
  - Poisoning [Recovered/Resolved]
  - Somnolence [Recovered/Resolved]
  - Cyanosis [Recovered/Resolved]
